FAERS Safety Report 21296725 (Version 1)
Quarter: 2022Q3

REPORT INFORMATION
  Report Type: Spontaneous
  Country: US (occurrence: None)
  Receive Date: 20220902
  Receipt Date: 20220902
  Transmission Date: 20221027
  Serious: Yes (Hospitalization)
  Sender: FDA-Public Use
  Company Number: None

PATIENT
  Sex: Female

DRUGS (1)
  1. XOLAIR [Suspect]
     Active Substance: OMALIZUMAB
     Indication: Idiopathic urticaria
     Dosage: OTHER FREQUENCY : Q 4WKS;?
     Route: 058
     Dates: start: 20220810

REACTIONS (4)
  - Therapy non-responder [None]
  - Headache [None]
  - Pain [None]
  - Urticaria [None]
